FAERS Safety Report 17340741 (Version 1)
Quarter: 2020Q1

REPORT INFORMATION
  Report Type: Spontaneous
  Country: US (occurrence: US)
  Receive Date: 20200129
  Receipt Date: 20200129
  Transmission Date: 20200409
  Serious: No
  Sender: FDA-Public Use
  Company Number: US-ALLERGAN-1915451US

PATIENT
  Age: 37 Year
  Sex: Female

DRUGS (14)
  1. POTASSIUM [Concomitant]
     Active Substance: POTASSIUM
  2. NATPARA (PARATHYROID HORMONE) [Concomitant]
     Active Substance: PARATHYROID HORMONE
  3. VENTOLIN [Concomitant]
     Active Substance: ALBUTEROL SULFATE
  4. SYNTHROID [Concomitant]
     Active Substance: LEVOTHYROXINE SODIUM
  5. BOTOX [Suspect]
     Active Substance: ONABOTULINUMTOXINA
     Indication: MIGRAINE
     Dosage: 75 UNITS, SINGLE
     Route: 030
  6. CELECOXIB. [Concomitant]
     Active Substance: CELECOXIB
  7. SUMATRIPTAN. [Concomitant]
     Active Substance: SUMATRIPTAN
  8. THYROMELACTON [Concomitant]
  9. HYDROCHLOROTHIAZIDE. [Concomitant]
     Active Substance: HYDROCHLOROTHIAZIDE
  10. WELLBUTRIN [Concomitant]
     Active Substance: BUPROPION HYDROCHLORIDE
  11. SOMA [Concomitant]
     Active Substance: CARISOPRODOL
  12. SPRIX [Concomitant]
     Active Substance: KETOROLAC TROMETHAMINE
  13. JARDIANCE [Concomitant]
     Active Substance: EMPAGLIFLOZIN
  14. ARMOUR THYROID [Concomitant]
     Active Substance: THYROID, PORCINE

REACTIONS (3)
  - Product preparation error [Unknown]
  - Product substitution issue [Unknown]
  - Injection site pain [Not Recovered/Not Resolved]

NARRATIVE: CASE EVENT DATE: 20190404
